FAERS Safety Report 9263700 (Version 1)
Quarter: 2013Q2

REPORT INFORMATION
  Report Type: Spontaneous
  Country: US (occurrence: None)
  Receive Date: 20130429
  Receipt Date: 20130429
  Transmission Date: 20140414
  Serious: Yes (Hospitalization, Other)
  Sender: FDA-Public Use
  Company Number: None

PATIENT
  Age: 35 Year
  Sex: Male
  Weight: 65.77 kg

DRUGS (2)
  1. CREST PRO-HEALTH [Suspect]
     Indication: DENTAL CARE
     Dosage: 4 TEASPOON
     Route: 048
     Dates: start: 20130427, end: 20130427
  2. CREST PRO-HEALTH MULTI-PROTECTION REFRESHING CLEAN MINT [Concomitant]

REACTIONS (3)
  - Oedema mouth [None]
  - Oral discomfort [None]
  - Product quality issue [None]
